FAERS Safety Report 11776785 (Version 1)
Quarter: 2015Q4

REPORT INFORMATION
  Report Type: Spontaneous
  Country: US (occurrence: US)
  Receive Date: 20151125
  Receipt Date: 20151125
  Transmission Date: 20160304
  Serious: No
  Sender: FDA-Public Use
  Company Number: US-TEVA-549755USA

PATIENT
  Age: 70 Year
  Sex: Female

DRUGS (1)
  1. BUDESONIDE. [Suspect]
     Active Substance: BUDESONIDE
     Indication: STAPHYLOCOCCAL INFECTION
     Dosage: SUSPENSION/DOSE NOT PROVIDED
     Route: 055
     Dates: start: 20141223

REACTIONS (7)
  - Nasal discharge discolouration [Unknown]
  - Product use issue [Unknown]
  - Wrong technique in product usage process [Unknown]
  - Nasal dryness [Unknown]
  - Nausea [Unknown]
  - Balance disorder [Unknown]
  - Dizziness [Unknown]

NARRATIVE: CASE EVENT DATE: 20141223
